FAERS Safety Report 7258790-9 (Version None)
Quarter: 2011Q1

REPORT INFORMATION
  Report Type: 
  Country: None (occurrence: None)
  Receive Date: 20110129
  Receipt Date: 20100514
  Transmission Date: 20110831
  Serious: No
  Sender: FDA-Public Use
  Company Number: US-ABBOTT-10P-163-0645212-00

PATIENT
  Age: 36 Year
  Sex: Female

DRUGS (7)
  1. SULFASALAZINE [Concomitant]
     Indication: PAIN
     Dosage: 500MG TWO BID
     Route: 048
  2. NABUMETONE [Concomitant]
     Indication: INFLAMMATION
     Route: 048
  3. IMPLANON [Concomitant]
     Indication: CONTRACEPTION
  4. CELEXA [Concomitant]
     Indication: ANXIETY
     Route: 048
  5. SULFASALAZINE [Concomitant]
     Indication: INFLAMMATION
  6. FOLIC ACID [Concomitant]
     Route: 048
  7. HUMIRA [Suspect]
     Indication: RHEUMATOID ARTHRITIS
     Dates: start: 20080912

REACTIONS (3)
  - WRONG TECHNIQUE IN DRUG USAGE PROCESS [None]
  - DRUG DOSE OMISSION [None]
  - CONTUSION [None]
